FAERS Safety Report 4823415-6 (Version None)
Quarter: 2005Q4

REPORT INFORMATION
  Report Type: 
  Country: None (occurrence: None)
  Receive Date: 20051107
  Receipt Date: 20051020
  Transmission Date: 20060501
  Serious: Yes (Hospitalization, Disabling, Congenital Anomaly)
  Sender: FDA-Public Use
  Company Number: DSA_27342_2005

PATIENT
  Sex: 0

DRUGS (4)
  1. TEMESTA [Suspect]
     Dosage: DF TRAN-P
     Route: 064
     Dates: start: 20030824, end: 20030930
  2. ANAFRANIL [Suspect]
     Dosage: 25 MG Q DAY TRAN-P
     Route: 064
     Dates: start: 20030824, end: 20040313
  3. REMERON [Suspect]
     Dosage: DF TRAN-P
     Route: 064
     Dates: start: 20030824, end: 20031010
  4. TRANXILIUM [Suspect]
     Dosage: 10 MG Q DAY TRAN-P
     Route: 064
     Dates: start: 20030901, end: 20030915

REACTIONS (5)
  - APGAR SCORE LOW [None]
  - DRUG EXPOSURE DURING PREGNANCY [None]
  - FALLOT'S TETRALOGY [None]
  - PREMATURE BABY [None]
  - SMALL FOR DATES BABY [None]
